FAERS Safety Report 5777510-8 (Version None)
Quarter: 2008Q2

REPORT INFORMATION
  Report Type: 
  Country: None (occurrence: None)
  Receive Date: 20080616
  Receipt Date: 20080528
  Transmission Date: 20081010
  Serious: Yes (Hospitalization)
  Sender: FDA-Public Use
  Company Number: 022305

PATIENT
  Age: 17 Year
  Sex: Male

DRUGS (1)
  1. CLARAVIS [Suspect]
     Indication: ACNE
     Dosage: 60 MG,QD,ORAL
     Route: 048
     Dates: start: 20071210, end: 20071228

REACTIONS (2)
  - INTRA-ABDOMINAL HAEMORRHAGE [None]
  - MUSCULOSKELETAL PAIN [None]
